FAERS Safety Report 10171431 (Version 1)
Quarter: 2014Q2

REPORT INFORMATION
  Report Type: Report from Study
  Country: CA (occurrence: None)
  Receive Date: 20140512
  Receipt Date: 20140512
  Transmission Date: 20141212
  Serious: Yes (Hospitalization)
  Sender: FDA-Public Use
  Company Number: CA-015440

PATIENT
  Age: 68 Year
  Sex: Male

DRUGS (1)
  1. FIRMAGON /01764801/ (FIRMAGON) 240 MG (NOT SPECIFIED) [Suspect]
     Indication: PROSTATE CANCER
     Route: 058
     Dates: start: 20140403

REACTIONS (5)
  - Dysuria [None]
  - Incontinence [None]
  - Hot flush [None]
  - Injection site erythema [None]
  - Injection site rash [None]
